FAERS Safety Report 24933911 (Version 1)
Quarter: 2025Q1

REPORT INFORMATION
  Report Type: Report from Study
  Country: US (occurrence: US)
  Receive Date: 20250206
  Receipt Date: 20250206
  Transmission Date: 20250409
  Serious: Yes (Other)
  Sender: EXELIXIS
  Company Number: US-EXELIXIS-CABO-24075946

PATIENT

DRUGS (1)
  1. CABOMETYX [Suspect]
     Active Substance: CABOZANTINIB S-MALATE
     Indication: Product used for unknown indication

REACTIONS (8)
  - Pain in extremity [Unknown]
  - Diabetes mellitus [Unknown]
  - Surgery [Unknown]
  - Hip fracture [Unknown]
  - Tooth extraction [Unknown]
  - Neoplasm [Unknown]
  - Insomnia [Unknown]
  - Loss of personal independence in daily activities [Unknown]
